FAERS Safety Report 5262397-2 (Version None)
Quarter: 2007Q1

REPORT INFORMATION
  Report Type: 
  Country: None (occurrence: None)
  Receive Date: 20070309
  Receipt Date: 20070309
  Transmission Date: 20070707
  Serious: Yes (Hospitalization)
  Sender: FDA-Public Use
  Company Number: None

PATIENT
  Age: 56 Year
  Sex: Male
  Weight: 120.6568 kg

DRUGS (2)
  1. QUETIAPINE FUMARATE [Suspect]
     Indication: OFF LABEL USE
     Dates: start: 20030401, end: 20070301
  2. QUETIAPINE FUMARATE [Suspect]
     Indication: POST-TRAUMATIC STRESS DISORDER
     Dates: start: 20030401, end: 20070301

REACTIONS (11)
  - BLOOD GLUCOSE INCREASED [None]
  - DECREASED APPETITE [None]
  - DIABETIC KETOACIDOSIS [None]
  - FATIGUE [None]
  - GLUCOSE TOLERANCE IMPAIRED [None]
  - GLYCOSYLATED HAEMOGLOBIN INCREASED [None]
  - HYPEROSMOLAR STATE [None]
  - POLYDIPSIA [None]
  - POLYURIA [None]
  - TREMOR [None]
  - WEIGHT INCREASED [None]
